FAERS Safety Report 18999842 (Version 1)
Quarter: 2021Q1

REPORT INFORMATION
  Report Type: Spontaneous
  Country: US (occurrence: US)
  Receive Date: 20210311
  Receipt Date: 20210311
  Transmission Date: 20210420
  Serious: Yes (Other)
  Sender: FDA-Public Use
  Company Number: US-PFIZER INC-2021237117

PATIENT
  Age: 72 Year
  Sex: Female

DRUGS (1)
  1. AROMASIN [Suspect]
     Active Substance: EXEMESTANE
     Indication: ENDOMETRIAL CANCER
     Dosage: 25 MG

REACTIONS (3)
  - Off label use [Unknown]
  - Breast cancer [Unknown]
  - Second primary malignancy [Unknown]
